FAERS Safety Report 21960362 (Version 1)
Quarter: 2023Q1

REPORT INFORMATION
  Report Type: Spontaneous
  Country: US (occurrence: US)
  Receive Date: 20230207
  Receipt Date: 20230207
  Transmission Date: 20230418
  Serious: No
  Sender: FDA-Public Use
  Company Number: US-AUROBINDO-AUR-APL-2022-021269

PATIENT
  Sex: Female

DRUGS (1)
  1. OLOPATADINE HYDROCHLORIDE OPHTHALMIC SOLUTION [Suspect]
     Active Substance: OLOPATADINE HYDROCHLORIDE
     Indication: Product used for unknown indication
     Dosage: UNK
     Route: 065

REACTIONS (2)
  - Eye irritation [Unknown]
  - Headache [Unknown]

NARRATIVE: CASE EVENT DATE: 20220607
